FAERS Safety Report 4833218-4 (Version None)
Quarter: 2005Q4

REPORT INFORMATION
  Report Type: 
  Country: None (occurrence: None)
  Receive Date: 20051117
  Receipt Date: 20051031
  Transmission Date: 20060501
  Serious: Yes (Other)
  Sender: FDA-Public Use
  Company Number: EWC051147126

PATIENT
  Age: 75 Year
  Sex: Male
  Weight: 65 kg

DRUGS (5)
  1. CECLOR [Suspect]
     Indication: PROPHYLAXIS
  2. GLUCOPHAGE [Concomitant]
  3. TENORMIN [Concomitant]
  4. PLAVIX [Concomitant]
  5. VAXIGRIP (INFLUENZA VIRUS VACCINE POLYVALENT) [Concomitant]

REACTIONS (4)
  - FACE OEDEMA [None]
  - HYPERSENSITIVITY [None]
  - NO REACTION ON PREVIOUS EXPOSURE TO DRUG [None]
  - URTICARIA [None]
